FAERS Safety Report 5046648-5 (Version None)
Quarter: 2006Q3

REPORT INFORMATION
  Report Type: 
  Country: None (occurrence: None)
  Receive Date: 20060710
  Receipt Date: 20060628
  Transmission Date: 20061208
  Serious: Yes (Life-Threatening, Hospitalization)
  Sender: FDA-Public Use
  Company Number: JP-BRISTOL-MYERS SQUIBB COMPANY-13435342

PATIENT
  Age: 25 Year
  Sex: Male

DRUGS (5)
  1. ABILIFY [Suspect]
     Indication: SCHIZOPHRENIA
     Route: 048
     Dates: start: 20060622, end: 20060627
  2. RISPERIDONE [Suspect]
     Indication: SCHIZOPHRENIA
     Route: 048
     Dates: start: 20060512
  3. ZOPICLONE [Concomitant]
     Indication: INSOMNIA
     Route: 048
     Dates: start: 20060512
  4. NITRAZEPAM [Concomitant]
     Indication: INSOMNIA
     Dosage: 20 MG, THEN DECR. TO 10 MG ON 07-JUN-2006, THEN DECR. TO 5 MG ON 22-JUN-2006.
     Route: 048
     Dates: start: 20060512, end: 20060627
  5. TRIHEXYPHENIDYL HCL [Concomitant]
     Indication: EXTRAPYRAMIDAL DISORDER
     Dosage: 6 MG, THEN DECR. 4 MG TO 14-JUN-2006, THEN DECR. TO 2 MG 21-JUN-2006
     Route: 048
     Dates: start: 20060512

REACTIONS (6)
  - DEPRESSED MOOD [None]
  - DIZZINESS [None]
  - FEELING ABNORMAL [None]
  - GAZE PALSY [None]
  - HEADACHE [None]
  - SUICIDE ATTEMPT [None]
